FAERS Safety Report 24592027 (Version 1)
Quarter: 2024Q4

REPORT INFORMATION
  Report Type: Spontaneous
  Country: US (occurrence: US)
  Receive Date: 20241108
  Receipt Date: 20241108
  Transmission Date: 20250115
  Serious: Yes (Hospitalization, Other)
  Sender: AMGEN
  Company Number: US-AMGEN-USASP2024218863

PATIENT
  Age: 64 Year
  Sex: Male

DRUGS (2)
  1. RITUXIMAB [Suspect]
     Active Substance: RITUXIMAB
     Indication: Follicular lymphoma
     Dosage: UNK
     Route: 065
  2. IMATINIB [Concomitant]
     Active Substance: IMATINIB
     Indication: Chronic myeloid leukaemia
     Dosage: UNK
     Route: 065

REACTIONS (10)
  - Organising pneumonia [Unknown]
  - Corynebacterium bacteraemia [Unknown]
  - Febrile neutropenia [Unknown]
  - Pseudomonas infection [Recovering/Resolving]
  - Bacteroides infection [Recovering/Resolving]
  - Rhinovirus infection [Recovering/Resolving]
  - Herpes simplex [Recovering/Resolving]
  - Lymphopenia [Unknown]
  - Penicillium test positive [Recovering/Resolving]
  - Geotrichum infection [Recovering/Resolving]
